FAERS Safety Report 16776330 (Version 1)
Quarter: 2019Q3

REPORT INFORMATION
  Report Type: Report from Study
  Country: US (occurrence: US)
  Receive Date: 20190905
  Receipt Date: 20190905
  Transmission Date: 20191005
  Serious: Yes (Hospitalization, Other)
  Sender: FDA-Public Use
  Company Number: US-GILEAD-2019-0426759

PATIENT
  Age: 74 Year
  Sex: Female

DRUGS (11)
  1. NYSTATIN. [Concomitant]
     Active Substance: NYSTATIN
  2. PREDNISONE. [Concomitant]
     Active Substance: PREDNISONE
  3. ATORVASTATIN [Concomitant]
     Active Substance: ATORVASTATIN
  4. FUROSEMIDE. [Concomitant]
     Active Substance: FUROSEMIDE
  5. PANTOPRAZOLE [Concomitant]
     Active Substance: PANTOPRAZOLE
  6. LEVOTHYROXIN [Concomitant]
     Active Substance: LEVOTHYROXINE
  7. AMBRISENTAN [Suspect]
     Active Substance: AMBRISENTAN
     Indication: PULMONARY ARTERIAL HYPERTENSION
     Dosage: 5 MG, QD
     Route: 065
     Dates: start: 20190129
  8. ACYCLOVIR [ACICLOVIR] [Concomitant]
     Active Substance: ACYCLOVIR
  9. AMLODIPINE [Concomitant]
     Active Substance: AMLODIPINE BESYLATE
  10. SPIRONOLACTONE. [Concomitant]
     Active Substance: SPIRONOLACTONE
  11. PAROXETINE. [Concomitant]
     Active Substance: PAROXETINE

REACTIONS (1)
  - Pulmonary arterial hypertension [Unknown]
